FAERS Safety Report 21128990 (Version 1)
Quarter: 2022Q3

REPORT INFORMATION
  Report Type: Spontaneous
  Country: UA (occurrence: None)
  Receive Date: 20220725
  Receipt Date: 20220725
  Transmission Date: 20221026
  Serious: Yes (Death)
  Sender: FDA-Public Use
  Company Number: 2022A266123

PATIENT
  Sex: Female

DRUGS (3)
  1. BRILINTA [Suspect]
     Active Substance: TICAGRELOR
     Indication: Acute coronary syndrome
     Dosage: AT 14:30 - BRILINTA WAS GIVEN 180+ASK300 MG180.0MG ONCE/SINGLE ADMINISTRATION
     Route: 048
     Dates: end: 2022
  2. INTEGRILIN [Suspect]
     Active Substance: EPTIFIBATIDE
     Indication: Acute coronary syndrome
     Dosage: AT 15:05 -INJECTED INTEGRILIN
     Route: 042
     Dates: end: 2022
  3. ASPIRIN [Suspect]
     Active Substance: ASPIRIN
     Dosage: 300.0MG ONCE/SINGLE ADMINISTRATION
     Route: 065

REACTIONS (1)
  - Acute myeloid leukaemia [Fatal]
